FAERS Safety Report 20871824 (Version 3)
Quarter: 2022Q4

REPORT INFORMATION
  Report Type: Spontaneous
  Country: US (occurrence: US)
  Receive Date: 20220525
  Receipt Date: 20221219
  Transmission Date: 20230113
  Serious: No
  Sender: FDA-Public Use
  Company Number: US-PFIZER INC-202200752038

PATIENT
  Age: 61 Year
  Sex: Male

DRUGS (1)
  1. XELJANZ XR [Suspect]
     Active Substance: TOFACITINIB CITRATE
     Indication: Rheumatoid arthritis
     Dosage: 11 MG, DAILY
     Route: 048
     Dates: start: 2019

REACTIONS (7)
  - Arthralgia [Recovering/Resolving]
  - Arthritis [Recovering/Resolving]
  - Joint swelling [Recovering/Resolving]
  - Arthropathy [Unknown]
  - Weight decreased [Unknown]
  - Pain [Unknown]
  - Feeling abnormal [Unknown]
